FAERS Safety Report 9946567 (Version 1)
Quarter: 2014Q1

REPORT INFORMATION
  Report Type: Spontaneous
  Country: US (occurrence: US)
  Receive Date: 20140303
  Receipt Date: 20140303
  Transmission Date: 20141002
  Serious: No
  Sender: FDA-Public Use
  Company Number: US-AMGEN-USASP2014002586

PATIENT
  Age: 36 Year
  Sex: Female

DRUGS (2)
  1. ENBREL [Suspect]
     Indication: SYSTEMIC LUPUS ERYTHEMATOSUS
     Dosage: UNK UNK, QWK
     Route: 065
     Dates: start: 20131015, end: 201311
  2. METHOTREXATE [Concomitant]
     Dosage: 40 MG, QWK
     Dates: start: 20130930, end: 201311

REACTIONS (1)
  - Tendon pain [Not Recovered/Not Resolved]
